FAERS Safety Report 10152349 (Version 2)
Quarter: 2014Q2

REPORT INFORMATION
  Report Type: Spontaneous
  Country: US (occurrence: US)
  Receive Date: 20140505
  Receipt Date: 20140616
  Transmission Date: 20141212
  Serious: Yes (Other)
  Sender: FDA-Public Use
  Company Number: US-BAYER-2014-063263

PATIENT
  Age: 34 Year
  Sex: Female
  Weight: 51.7 kg

DRUGS (2)
  1. MIRENA [Suspect]
     Indication: CONTRACEPTION
     Dosage: 20 MCG/24HR, CONT
     Route: 015
     Dates: start: 20140331, end: 20140404
  2. MIRENA [Suspect]
     Indication: MENORRHAGIA

REACTIONS (3)
  - Uterine perforation [Recovered/Resolved]
  - Abdominal pain [Recovered/Resolved]
  - Device difficult to use [None]
